FAERS Safety Report 16311853 (Version 2)
Quarter: 2019Q2

REPORT INFORMATION
  Report Type: Report from Study
  Country: None (occurrence: BR)
  Receive Date: 20190514
  Receipt Date: 20190529
  Transmission Date: 20190711
  Serious: Yes (Disabling, Other)
  Sender: FDA-Public Use
  Company Number: BR-ABBVIE-19K-020-2678480-00

PATIENT
  Age: 70 Year
  Sex: Female
  Weight: 56.5 kg

DRUGS (1)
  1. HUMIRA [Suspect]
     Active Substance: ADALIMUMAB
     Indication: RHEUMATOID ARTHRITIS
     Route: 058
     Dates: start: 20080330, end: 20190204

REACTIONS (8)
  - Blindness unilateral [Recovering/Resolving]
  - Vision blurred [Recovered/Resolved]
  - Corneal disorder [Unknown]
  - Injury corneal [Recovering/Resolving]
  - Cataract [Recovered/Resolved]
  - Visual impairment [Unknown]
  - Limb operation [Unknown]
  - Post procedural inflammation [Recovering/Resolving]

NARRATIVE: CASE EVENT DATE: 20190423
